FAERS Safety Report 10716515 (Version 1)
Quarter: 2015Q1

REPORT INFORMATION
  Report Type: Spontaneous
  Country: US (occurrence: US)
  Receive Date: 20150116
  Receipt Date: 20150116
  Transmission Date: 20150721
  Serious: Yes (Hospitalization)
  Sender: FDA-Public Use
  Company Number: US-SA-2015SA004740

PATIENT
  Age: 93 Year
  Sex: Male

DRUGS (1)
  1. RENVELA [Suspect]
     Active Substance: SEVELAMER CARBONATE
     Indication: HYPERPHOSPHATAEMIA
     Dosage: TID WITH MEALS
     Route: 048

REACTIONS (4)
  - Wrong technique in drug usage process [Unknown]
  - Influenza [Not Recovered/Not Resolved]
  - Dysphagia [Not Recovered/Not Resolved]
  - Pneumonia [Not Recovered/Not Resolved]
